FAERS Safety Report 12122271 (Version 1)
Quarter: 2016Q1

REPORT INFORMATION
  Report Type: Spontaneous
  Country: DE (occurrence: DE)
  Receive Date: 20160226
  Receipt Date: 20160226
  Transmission Date: 20160526
  Serious: Yes (Other)
  Sender: FDA-Public Use
  Company Number: DE-ASTRAZENECA-2016SE18057

PATIENT
  Sex: Male

DRUGS (7)
  1. ISOPROPANOL [Concomitant]
     Active Substance: ISOPROPANOLAMINE
  2. BRILIQUE [Suspect]
     Active Substance: TICAGRELOR
     Indication: MYOCARDIAL INFARCTION
     Route: 048
     Dates: start: 20160216
  3. BRILIQUE [Suspect]
     Active Substance: TICAGRELOR
     Indication: MYOCARDIAL INFARCTION
     Route: 048
     Dates: start: 201504
  4. BEZAFIBRATE [Concomitant]
     Active Substance: BEZAFIBRATE
  5. ASS 100 [Concomitant]
     Active Substance: ASPIRIN
     Route: 048
     Dates: start: 201504
  6. L-THYROXIN [Concomitant]
     Active Substance: LEVOTHYROXINE SODIUM
  7. RAMIPRIL. [Concomitant]
     Active Substance: RAMIPRIL

REACTIONS (3)
  - Bladder neoplasm [Unknown]
  - Urinary bladder haemorrhage [Not Recovered/Not Resolved]
  - Haematuria [Unknown]

NARRATIVE: CASE EVENT DATE: 201512
